FAERS Safety Report 7209864-X (Version None)
Quarter: 2011Q1

REPORT INFORMATION
  Report Type: 
  Country: None (occurrence: None)
  Receive Date: 20110104
  Receipt Date: 20101223
  Transmission Date: 20110831
  Serious: Yes (Other)
  Sender: FDA-Public Use
  Company Number: IT-BAYER-2010-007966

PATIENT
  Sex: Male

DRUGS (2)
  1. KENACORT [Concomitant]
  2. AVELOX [Suspect]
     Indication: PRODUCT USED FOR UNKNOWN INDICATION
     Dosage: 400 MG, QD
     Route: 048
     Dates: start: 20100201, end: 20100201

REACTIONS (2)
  - URTICARIA [None]
  - BLISTER [None]
